FAERS Safety Report 8124823-0 (Version None)
Quarter: 2012Q1

REPORT INFORMATION
  Report Type: 
  Country: None (occurrence: None)
  Receive Date: 20120209
  Receipt Date: 20120206
  Transmission Date: 20120608
  Serious: Yes (Other)
  Sender: FDA-Public Use
  Company Number: US-PFIZER INC-2012031993

PATIENT
  Sex: Female

DRUGS (1)
  1. PREMPRO [Suspect]
     Dosage: UNK (0.45 FOR 3 MONTHS)
     Dates: start: 20111101

REACTIONS (2)
  - HAEMORRHAGE [None]
  - MUSCLE SPASMS [None]
